FAERS Safety Report 9196328 (Version 1)
Quarter: 2013Q1

REPORT INFORMATION
  Report Type: Spontaneous
  Country: US (occurrence: None)
  Receive Date: 20120709
  Receipt Date: 20120709
  Transmission Date: 20140127
  Serious: No
  Sender: FDA-Public Use
  Company Number: 2012HGS-003511

PATIENT
  Age: 55 Year
  Sex: Female
  Weight: 95.26 kg

DRUGS (19)
  1. BENLYSTA [Suspect]
     Indication: SYSTEMIC LUPUS ERYTHEMATOSUS
     Dosage: 1 IN 28 D, INTRAVENOUS DRIP
     Route: 041
     Dates: start: 20120410
  2. NORCO (VICODIN) (PARACETAMOL, HYDROCODONE BITARTRATE) [Concomitant]
  3. COREG (CARVEDILOL) (CARVEDILOL) [Concomitant]
  4. METHADONE (METHADONE) (METHADONE) [Concomitant]
  5. SPIRONOLACTONE (SPIRONOLACTONE) (SPIRONOLACTONE) [Concomitant]
  6. ZANTAC (RANITIDINE HYDROCHLORIDE) (RANITIDINE HYDROCHLORIDE) [Concomitant]
  7. NEXIUM (ESOMEPRAZOLE MAGNESIUM) (ESOMEPRAZOLE MAGNESIUM) [Concomitant]
  8. MIRAPEX (PRAMIPEXOLE DIHYDROCHLORIDE) (PRAMIPEXOLE DIHYDROCHLORIDE) [Concomitant]
  9. AMBIEN (ZOLPIDEM TARTRATE) (ZOLPIDEM TARTRATE) [Concomitant]
  10. PLAQUENIL (HYDROXYCHLOROQUINE PHOSPHATE) (HYDROXYCHLOROQUINE PHOSPHATE) [Concomitant]
  11. METFORMIN (METFORMIN) (METFORMIN) [Concomitant]
  12. LEVEMIR (INSULIN DETEMIR) (INSULIN DETEMIR) [Concomitant]
  13. FOLIC ACID (FOLIC ACID) (FOLIC ACID) [Concomitant]
  14. XANAX (ALPRAZOLAM) (ALPRAZOLAM) [Concomitant]
  15. MICARDIS (TELMISARTAN) (TELMISARTAN) [Concomitant]
  16. CALCIUM (CALCIUM) (CALCIUM) [Concomitant]
  17. ASPIRIN (ACETYLSALICYLIC ACID) (ACETYLSALICYLIC ACID) [Concomitant]
  18. SAVELLA (MILNACIPRAN HYDROCHLORIDE) (MILNACIPRAN HYDROCHLORIDE) [Concomitant]
  19. GABAPENTIN (GABAPENTIN) (GABAPENTIN) [Concomitant]

REACTIONS (1)
  - Pruritus generalised [None]
